FAERS Safety Report 9804379 (Version 1)
Quarter: 2014Q1

REPORT INFORMATION
  Report Type: Spontaneous
  Country: US (occurrence: None)
  Receive Date: 20140106
  Receipt Date: 20140106
  Transmission Date: 20141002
  Serious: Yes (Death, Other)
  Sender: FDA-Public Use
  Company Number: FK201400005

PATIENT
  Age: 55 Year
  Sex: Female

DRUGS (2)
  1. MITOXANTRONE [Suspect]
     Indication: BREAST CANCER
  2. THIOTEPA [Suspect]
     Indication: BREAST CANCER

REACTIONS (2)
  - Myelodysplastic syndrome [None]
  - Hepatocellular carcinoma [None]
